FAERS Safety Report 4496654-4 (Version None)
Quarter: 2004Q4

REPORT INFORMATION
  Report Type: 
  Country: None (occurrence: None)
  Receive Date: 20041108
  Receipt Date: 20041108
  Transmission Date: 20050328
  Serious: Yes (Hospitalization)
  Sender: FDA-Public Use
  Company Number: None

PATIENT
  Age: 72 Year
  Sex: Male
  Weight: 91.4 kg

DRUGS (2)
  1. IBUPROFEN [Suspect]
     Indication: OSTEOARTHRITIS
     Dosage: 800 MG TID ORAL
     Route: 048
     Dates: start: 19970819, end: 20040831
  2. CLOPIDOGREL BISULFATE [Concomitant]
     Indication: STENT PLACEMENT
     Dosage: 75 MG Q DAY ORAL
     Route: 048
     Dates: start: 20040416, end: 20040729

REACTIONS (3)
  - GASTROINTESTINAL HAEMORRHAGE [None]
  - HAEMOGLOBIN DECREASED [None]
  - MELAENA [None]
